FAERS Safety Report 11848388 (Version 1)
Quarter: 2015Q4

REPORT INFORMATION
  Report Type: Other
  Country: CH (occurrence: CH)
  Receive Date: 20151217
  Receipt Date: 20151217
  Transmission Date: 20160305
  Serious: No
  Sender: FDA-Public Use
  Company Number: CH-LUPIN PHARMACEUTICALS INC.-2015-03140

PATIENT
  Age: 29 Year
  Sex: Female

DRUGS (4)
  1. AGOMELATINE [Suspect]
     Active Substance: AGOMELATINE
     Indication: DEPRESSION
     Dosage: 25 MG
     Route: 065
  2. AGOMELATINE [Suspect]
     Active Substance: AGOMELATINE
     Dosage: INCREASED DOSE TO 50 MG
     Route: 065
  3. DULOXETINE. [Suspect]
     Active Substance: DULOXETINE
     Indication: DEPRESSION
     Dosage: TITRATED UP TO 120 MG IN THE MORNING
     Route: 065
  4. DULOXETINE. [Suspect]
     Active Substance: DULOXETINE
     Route: 065

REACTIONS (2)
  - Akathisia [Recovered/Resolved]
  - Drug interaction [Recovered/Resolved]
